FAERS Safety Report 6377153-1 (Version None)
Quarter: 2009Q3

REPORT INFORMATION
  Report Type: 
  Country: None (occurrence: None)
  Receive Date: 20090925
  Receipt Date: 20090911
  Transmission Date: 20100115
  Serious: Yes (Hospitalization)
  Sender: FDA-Public Use
  Company Number: AU-MYLANLABS-2009S1014800

PATIENT
  Age: 41 Year
  Sex: Female
  Weight: 60 kg

DRUGS (3)
  1. DOXYLIN [Suspect]
     Indication: HELICOBACTER INFECTION
     Route: 048
     Dates: start: 20090701, end: 20090815
  2. MYCOBUTIN [Suspect]
     Indication: HELICOBACTER INFECTION
     Route: 048
     Dates: start: 20090811, end: 20090815
  3. PARIET [Concomitant]
     Indication: GASTROOESOPHAGEAL REFLUX DISEASE

REACTIONS (7)
  - HEPATITIS [None]
  - LEUKOPENIA [None]
  - NAUSEA [None]
  - NEUTROPENIA [None]
  - PAIN [None]
  - THROMBOCYTOPENIA [None]
  - VOMITING [None]
